APPROVED DRUG PRODUCT: KETOROLAC TROMETHAMINE
Active Ingredient: KETOROLAC TROMETHAMINE
Strength: 15MG/ML
Dosage Form/Route: INJECTABLE;INJECTION
Application: A074993 | Product #001
Applicant: HOSPIRA INC
Approved: Jan 27, 1999 | RLD: No | RS: No | Type: DISCN